FAERS Safety Report 19090452 (Version 1)
Quarter: 2021Q2

REPORT INFORMATION
  Report Type: Spontaneous
  Country: JP (occurrence: JP)
  Receive Date: 20210405
  Receipt Date: 20210405
  Transmission Date: 20210717
  Serious: Yes (Death, Hospitalization, Other)
  Sender: FDA-Public Use
  Company Number: JP-ROCHE-2798265

PATIENT
  Age: 5 Year
  Sex: Male

DRUGS (31)
  1. ACTEMRA [Suspect]
     Active Substance: TOCILIZUMAB
     Route: 041
     Dates: start: 20190412, end: 20190412
  2. POTASSIUM CANRENOATE [Concomitant]
     Active Substance: CANRENOATE POTASSIUM
     Indication: URINE OUTPUT DECREASED
     Route: 042
     Dates: start: 20190410, end: 20190410
  3. ACETAMINOPHEN. [Concomitant]
     Active Substance: ACETAMINOPHEN
     Indication: TUMOUR LYSIS SYNDROME
  4. FENTANYL. [Concomitant]
     Active Substance: FENTANYL
     Dosage: CONTINUOUS
     Route: 042
     Dates: start: 20190416, end: 20190417
  5. HYDROXYZINE HYDROCHLORIDE. [Concomitant]
     Active Substance: HYDROXYZINE HYDROCHLORIDE
     Indication: PROPHYLAXIS
     Route: 042
     Dates: start: 20190312, end: 20190416
  6. HYDROXYZINE HYDROCHLORIDE. [Concomitant]
     Active Substance: HYDROXYZINE HYDROCHLORIDE
     Indication: ALLERGIC TRANSFUSION REACTION
  7. MIDAZOLAM. [Concomitant]
     Active Substance: MIDAZOLAM
     Dosage: CONTINUOUS
     Route: 042
     Dates: start: 20190415, end: 20190417
  8. VORICONAZOLE. [Concomitant]
     Active Substance: VORICONAZOLE
     Route: 042
     Dates: start: 20190403, end: 20190414
  9. POTASSIUM CANRENOATE [Concomitant]
     Active Substance: CANRENOATE POTASSIUM
     Route: 042
     Dates: start: 20190411, end: 20190411
  10. METHYLPREDNISOLONE. [Concomitant]
     Active Substance: METHYLPREDNISOLONE
     Indication: CYTOKINE RELEASE SYNDROME
     Route: 042
     Dates: start: 20190409, end: 20190409
  11. TEICOPLANIN [Concomitant]
     Active Substance: TEICOPLANIN
     Route: 042
     Dates: start: 20190410, end: 20190413
  12. TEICOPLANIN [Concomitant]
     Active Substance: TEICOPLANIN
     Route: 042
     Dates: start: 20190414, end: 20190414
  13. NAFAMOSTAT MESILATE [Concomitant]
     Active Substance: NAFAMOSTAT MESYLATE
     Indication: CONTINUOUS HAEMODIAFILTRATION
     Dosage: CONTINUOUS
     Route: 042
     Dates: start: 20190416, end: 20190417
  14. MIDAZOLAM. [Concomitant]
     Active Substance: MIDAZOLAM
     Indication: SEDATION
     Dosage: CONTINUOUS
     Route: 042
     Dates: start: 20190414, end: 20190414
  15. POTASSIUM CANRENOATE [Concomitant]
     Active Substance: CANRENOATE POTASSIUM
     Route: 042
     Dates: start: 20190412, end: 20190412
  16. ACTEMRA [Suspect]
     Active Substance: TOCILIZUMAB
     Indication: CYTOKINE RELEASE SYNDROME
     Route: 041
     Dates: start: 20190408, end: 20190408
  17. ACTEMRA [Suspect]
     Active Substance: TOCILIZUMAB
     Route: 041
     Dates: start: 20190411, end: 20190411
  18. FENTANYL. [Concomitant]
     Active Substance: FENTANYL
     Indication: SEDATION
     Dosage: CONTINUOUS
     Route: 042
     Dates: start: 20190414, end: 20190415
  19. ALLOPURINOL. [Concomitant]
     Active Substance: ALLOPURINOL
     Indication: HYPERURICAEMIA
     Route: 048
     Dates: start: 20190326, end: 20190401
  20. CTL 019 [Suspect]
     Active Substance: TISAGENLECLEUCEL
     Indication: ACUTE LYMPHOCYTIC LEUKAEMIA
     Dosage: DOSAGE IS UNCERTAIN.
     Route: 041
     Dates: start: 20190401
  21. TEICOPLANIN [Concomitant]
     Active Substance: TEICOPLANIN
     Indication: CYTOKINE RELEASE SYNDROME
     Route: 042
     Dates: start: 20190407, end: 20190407
  22. ALLOPURINOL. [Concomitant]
     Active Substance: ALLOPURINOL
     Route: 048
     Dates: start: 20190413, end: 20190413
  23. DEXMEDETOMIDINE. [Concomitant]
     Active Substance: DEXMEDETOMIDINE
     Indication: SEDATION
     Dosage: DOSE INTERVAL UNCERTAINTY
     Route: 042
     Dates: start: 20190402, end: 20190417
  24. VORICONAZOLE. [Concomitant]
     Active Substance: VORICONAZOLE
     Indication: CYTOKINE RELEASE SYNDROME
     Route: 042
     Dates: start: 20190402, end: 20190402
  25. ACTEMRA [Suspect]
     Active Substance: TOCILIZUMAB
     Route: 041
     Dates: start: 20190410, end: 20190410
  26. TEICOPLANIN [Concomitant]
     Active Substance: TEICOPLANIN
     Route: 042
     Dates: start: 20190408, end: 20190408
  27. ACETAMINOPHEN. [Concomitant]
     Active Substance: ACETAMINOPHEN
     Indication: CYTOKINE RELEASE SYNDROME
     Route: 042
     Dates: start: 20190402, end: 20190417
  28. OFLOXACIN. [Concomitant]
     Active Substance: OFLOXACIN
     Indication: PROPHYLAXIS
     Dosage: DOSAGE IS UNCERTAIN.
     Route: 061
     Dates: start: 20190414, end: 20190417
  29. METHYLPREDNISOLONE. [Concomitant]
     Active Substance: METHYLPREDNISOLONE
     Route: 042
     Dates: start: 20190413, end: 20190416
  30. VORICONAZOLE. [Concomitant]
     Active Substance: VORICONAZOLE
     Route: 042
     Dates: start: 20190415, end: 20190415
  31. DAIPHEN [Concomitant]
     Active Substance: SULFAMETHOXAZOLE\TRIMETHOPRIM
     Indication: INFECTION PROPHYLAXIS
     Dosage: DOSE INTERVAL UNCERTAINTY
     Route: 048
     Dates: start: 20181114, end: 20190417

REACTIONS (7)
  - Acute kidney injury [Not Recovered/Not Resolved]
  - Tumour lysis syndrome [Fatal]
  - Hypoalbuminaemia [Not Recovered/Not Resolved]
  - Hypokalaemia [Recovered/Resolved]
  - Cytokine release syndrome [Fatal]
  - Disseminated intravascular coagulation [Not Recovered/Not Resolved]
  - Hypoxia [Not Recovered/Not Resolved]

NARRATIVE: CASE EVENT DATE: 20190408
